FAERS Safety Report 7826705-8 (Version None)
Quarter: 2011Q4

REPORT INFORMATION
  Report Type: 
  Country: None (occurrence: None)
  Receive Date: 20111020
  Receipt Date: 20110823
  Transmission Date: 20120403
  Serious: No
  Sender: FDA-Public Use
  Company Number: US-MYLANLABS-2011S1017724

PATIENT
  Age: 70 Year
  Sex: Female

DRUGS (6)
  1. LISINOPRIL [Concomitant]
     Indication: BLOOD PRESSURE
     Route: 048
  2. METOPROLOL TARTRATE [Concomitant]
     Indication: BLOOD PRESSURE
     Route: 048
  3. FUROSEMIDE [Concomitant]
     Indication: BLOOD PRESSURE
     Route: 048
  4. DOXAZOSIN MESYLATE [Concomitant]
     Indication: CAROTID ARTERY DISEASE
     Route: 048
  5. CLONIDINE [Suspect]
     Indication: BLOOD PRESSURE
     Dosage: QW
     Route: 062
     Dates: start: 20110701
  6. ASPIRIN [Concomitant]
     Route: 048

REACTIONS (3)
  - APPLICATION SITE PRURITUS [None]
  - APPLICATION SITE RASH [None]
  - APPLICATION SITE ERYTHEMA [None]
